FAERS Safety Report 8716537 (Version 3)
Quarter: 2012Q4

REPORT INFORMATION
  Report Type: Report from Study
  Country: GB (occurrence: GB)
  Receive Date: 20120810
  Receipt Date: 20120912
  Transmission Date: 20130627
  Serious: Yes (Hospitalization)
  Sender: FDA-Public Use
  Company Number: GB-AMGEN-GBRCT2012048722

PATIENT
  Age: 79 Year
  Sex: Male

DRUGS (3)
  1. ETANERCEPT [Suspect]
     Indication: PRODUCT USED FOR UNKNOWN INDICATION
     Dosage: UNK
     Dates: start: 20120416, end: 20120720
  2. DONEPEZIL [Concomitant]
     Dosage: 10 mg, 1x/day
  3. ENALAPRIL [Concomitant]
     Dosage: 5 mg, 1x/day

REACTIONS (1)
  - Urinary tract infection [Recovered/Resolved]
